FAERS Safety Report 12100411 (Version 1)
Quarter: 2016Q1

REPORT INFORMATION
  Report Type: Spontaneous
  Country: US (occurrence: US)
  Receive Date: 20160222
  Receipt Date: 20160222
  Transmission Date: 20160526
  Serious: No
  Sender: FDA-Public Use
  Company Number: US-JNJFOC-20160212758

PATIENT
  Sex: Female

DRUGS (1)
  1. INVEGA TRINZA [Suspect]
     Active Substance: PALIPERIDONE PALMITATE
     Indication: PRODUCT USED FOR UNKNOWN INDICATION
     Route: 030
     Dates: start: 20160208

REACTIONS (5)
  - Blood glucose increased [Unknown]
  - Hypersomnia [Unknown]
  - Gait disturbance [Unknown]
  - Stupor [Unknown]
  - Somnolence [Unknown]

NARRATIVE: CASE EVENT DATE: 20160208
